FAERS Safety Report 11750780 (Version 3)
Quarter: 2015Q4

REPORT INFORMATION
  Report Type: Spontaneous
  Country: SE (occurrence: SE)
  Receive Date: 20151118
  Receipt Date: 20151130
  Transmission Date: 20160304
  Serious: Yes (Life-Threatening, Hospitalization, Other)
  Sender: FDA-Public Use
  Company Number: SE-TEVA-609501ISR

PATIENT
  Age: 54 Year
  Sex: Female

DRUGS (7)
  1. PRIVIGEN [Concomitant]
     Active Substance: HUMAN IMMUNOGLOBULIN G
     Route: 042
     Dates: start: 20150130, end: 20150206
  2. COMBIVENT [Concomitant]
     Active Substance: ALBUTEROL SULFATE\IPRATROPIUM BROMIDE
     Route: 055
     Dates: start: 20150130, end: 20150219
  3. ACETYLCYSTEINE. [Concomitant]
     Active Substance: ACETYLCYSTEINE
     Route: 048
     Dates: start: 201501
  4. DOXYCYKLIN EQL PHARMA [Suspect]
     Active Substance: DOXYCYCLINE
     Indication: EAR INFECTION
     Dosage: FIRST DAY 2 TABLETTS, SECOND AND THIRD DAY 1 TABLETT TWO TIMES
     Route: 048
     Dates: start: 20150108, end: 20150118
  5. VENTOLIN [Concomitant]
     Active Substance: ALBUTEROL SULFATE
     Route: 055
     Dates: start: 20150129, end: 20150130
  6. FLOXACILLIN SODIUM [Concomitant]
     Active Substance: FLUCLOXACILLIN SODIUM ANHYDROUS
     Indication: FACIAL BONES FRACTURE
     Route: 048
     Dates: start: 20150222
  7. MOLLIPECT [Concomitant]
     Active Substance: BROMHEXINE
     Route: 048
     Dates: start: 20150129, end: 20150130

REACTIONS (11)
  - Myasthenia gravis [Recovered/Resolved]
  - Respiratory syncytial virus infection [Recovered/Resolved]
  - Sinusitis [Recovered/Resolved]
  - Asthenia [Recovered/Resolved]
  - Asthenia [Recovered/Resolved]
  - Dyspnoea [Recovered/Resolved]
  - Bronchitis [Recovered/Resolved]
  - Ear infection [Recovered/Resolved]
  - Facial bones fracture [Recovered/Resolved]
  - Fall [Recovered/Resolved]
  - Cough [Recovered/Resolved]

NARRATIVE: CASE EVENT DATE: 201501
